FAERS Safety Report 8911758 (Version 1)
Quarter: 2012Q4

REPORT INFORMATION
  Report Type: 
  Country: US (occurrence: US)
  Receive Date: 20121116
  Receipt Date: 20121116
  Transmission Date: 20130627
  Serious: No
  Sender: FDA-Public Use
  Company Number: US-MYLANLABS-2012S1015767

PATIENT
  Age: 80 Year
  Sex: Female

DRUGS (1)
  1. AMLODIPINE [Suspect]
     Indication: BLOOD PRESSURE
     Route: 048
     Dates: start: 2012

REACTIONS (2)
  - Throat irritation [Not Recovered/Not Resolved]
  - Foreign body [Not Recovered/Not Resolved]
